FAERS Safety Report 15229454 (Version 2)
Quarter: 2018Q3

REPORT INFORMATION
  Report Type: Report from Study
  Country: GR (occurrence: GR)
  Receive Date: 20180802
  Receipt Date: 20180806
  Transmission Date: 20181010
  Serious: Yes (Hospitalization)
  Sender: FDA-Public Use
  Company Number: GR-UCBSA-2018033616

PATIENT
  Age: 77 Year
  Sex: Male

DRUGS (1)
  1. CERTOLIZUMAB PEGOL [Suspect]
     Active Substance: CERTOLIZUMAB PEGOL
     Indication: RHEUMATOID ARTHRITIS
     Dosage: UNK
     Dates: start: 20171105

REACTIONS (5)
  - Nausea [Unknown]
  - Asthenia [Unknown]
  - Treatment noncompliance [Unknown]
  - Dizziness [Unknown]
  - Vertigo [Recovering/Resolving]
